FAERS Safety Report 5412717-0 (Version None)
Quarter: 2007Q3

REPORT INFORMATION
  Report Type: 
  Country: None (occurrence: None)
  Receive Date: 20070813
  Receipt Date: 20070802
  Transmission Date: 20080115
  Serious: Yes (Death, Other)
  Sender: FDA-Public Use
  Company Number: US-SHR-US-2007-028626

PATIENT
  Age: 20 Year
  Sex: Female

DRUGS (1)
  1. CAMPATH [Suspect]
     Indication: LIVER TRANSPLANT

REACTIONS (2)
  - AUTOIMMUNE HEPATITIS [None]
  - TRANSPLANT FAILURE [None]
